FAERS Safety Report 15208521 (Version 4)
Quarter: 2018Q4

REPORT INFORMATION
  Report Type: Spontaneous
  Country: ES (occurrence: ES)
  Receive Date: 20180727
  Receipt Date: 20181126
  Transmission Date: 20190204
  Serious: Yes (Hospitalization, Other)
  Sender: FDA-Public Use
  Company Number: ES-PFIZER INC-2018298979

PATIENT
  Age: 87 Year
  Sex: Male

DRUGS (11)
  1. APIXABAN [Suspect]
     Active Substance: APIXABAN
     Indication: CEREBROVASCULAR ACCIDENT PROPHYLAXIS
     Dosage: 2.5 MG, BID
     Route: 065
  2. QUETIAPINA MYLAN [Suspect]
     Active Substance: QUETIAPINE
     Dosage: 25 MG, TID
     Route: 065
  3. IPRATROPIUM BROMIDE. [Suspect]
     Active Substance: IPRATROPIUM BROMIDE
     Dosage: 1  DF (UNITS UNSPECIFIED), Q6H
     Route: 045
  4. VILDAGLIPTIN [Suspect]
     Active Substance: VILDAGLIPTIN
     Indication: TYPE 2 DIABETES MELLITUS
     Dosage: 1 DF, QD
     Route: 065
  5. FENTANYL. [Suspect]
     Active Substance: FENTANYL
     Indication: DYSPNOEA
     Dosage: UNK
     Route: 048
  6. MIRABEGRON [Suspect]
     Active Substance: MIRABEGRON
     Dosage: 1 DF, QD
     Route: 065
  7. FLUOXETINE [Suspect]
     Active Substance: FLUOXETINE HYDROCHLORIDE
     Dosage: 20 MG, QD
     Route: 065
  8. VILDAGLIPTIN [Suspect]
     Active Substance: VILDAGLIPTIN
     Dosage: 50 MG, Q12H
     Route: 048
  9. FUROSEMIDA MYLAN [Suspect]
     Active Substance: FUROSEMIDE
     Dosage: 1 DF, QD
     Route: 065
  10. LATANOPROST. [Suspect]
     Active Substance: LATANOPROST
     Dosage: 2 GTT, QD
     Route: 065
  11. BUDESONIDE. [Suspect]
     Active Substance: BUDESONIDE
     Dosage: UNK, BID
     Route: 065

REACTIONS (14)
  - Arrhythmia [Unknown]
  - Dyspnoea [Recovered/Resolved]
  - Tachypnoea [Unknown]
  - Haemoglobin abnormal [Unknown]
  - Oedema peripheral [Unknown]
  - Lung infection [Unknown]
  - C-reactive protein abnormal [Unknown]
  - Bone marrow oedema [Unknown]
  - White blood cell count abnormal [Unknown]
  - Blood pressure abnormal [Unknown]
  - Heart rate abnormal [Unknown]
  - Peripheral venous disease [Unknown]
  - Bronchiectasis [Unknown]
  - Respiratory failure [Recovered/Resolved]
